FAERS Safety Report 4668588-3 (Version None)
Quarter: 2005Q2

REPORT INFORMATION
  Report Type: 
  Country: None (occurrence: None)
  Receive Date: 20050523
  Receipt Date: 20040831
  Transmission Date: 20051028
  Serious: Yes (Other)
  Sender: FDA-Public Use
  Company Number: PHNU2004DE03083

PATIENT
  Age: 53 Year
  Sex: Female
  Weight: 67 kg

DRUGS (7)
  1. ADRIAMYCIN + CYCLOPHOSPHAMIDE [Concomitant]
     Indication: BREAST CANCER METASTATIC
     Dosage: 1100 MG, ONCE/SINGLE
     Route: 042
     Dates: start: 20040105, end: 20040105
  2. ADRIAMYCIN + CYCLOPHOSPHAMIDE [Concomitant]
     Dosage: 1100 MG, ONCE/SINGLE
     Route: 042
     Dates: start: 20040126, end: 20040126
  3. ADRIAMYCIN + CYCLOPHOSPHAMIDE [Concomitant]
     Dosage: 1100 MG, ONCE/SINGLE
     Route: 042
     Dates: start: 20040216, end: 20040216
  4. ADRIAMYCIN + CYCLOPHOSPHAMIDE [Concomitant]
     Dosage: 1100 MG, ONCE/SINGLE
     Route: 042
     Dates: start: 20040308, end: 20040308
  5. ADRIAMYCIN + CYCLOPHOSPHAMIDE [Concomitant]
     Dosage: 1100 MG, ONCE/SINGLE
     Route: 042
     Dates: start: 20040329, end: 20040329
  6. ADRIAMYCIN + CYCLOPHOSPHAMIDE [Concomitant]
     Dosage: 1100 MG, ONCE/SINGLE
     Route: 042
     Dates: start: 20040419, end: 20040419
  7. ZOMETA [Suspect]
     Indication: METASTASES TO BONE
     Dosage: 4 MG, UNK
     Route: 042
     Dates: start: 20021104, end: 20040719

REACTIONS (3)
  - JAW DISORDER [None]
  - OSTEONECROSIS [None]
  - TOOTH DISORDER [None]
